FAERS Safety Report 10227266 (Version 1)
Quarter: 2014Q2

REPORT INFORMATION
  Report Type: Spontaneous
  Country: IE (occurrence: IE)
  Receive Date: 20140610
  Receipt Date: 20140610
  Transmission Date: 20141212
  Serious: Yes (Death)
  Sender: FDA-Public Use
  Company Number: IE-AMGEN INC.-IRLSP2014041587

PATIENT
  Age: 86 Year
  Sex: Male

DRUGS (18)
  1. ARANESP [Suspect]
     Indication: PRODUCT USED FOR UNKNOWN INDICATION
     Dosage: 40 MUG, QWK
     Route: 058
     Dates: start: 20110509
  2. BURINEX [Concomitant]
  3. SPIRIVA [Concomitant]
  4. TEMAZEPAM [Concomitant]
  5. FOLIC ACID [Concomitant]
  6. CLOPIDOGREL [Concomitant]
  7. CARVEDILOL [Concomitant]
  8. GALFER [Concomitant]
  9. WARFARIN [Concomitant]
  10. CRESTON [Concomitant]
  11. RAMIPRIL [Concomitant]
  12. AMIODARONE [Concomitant]
  13. ASPIRIN [Concomitant]
  14. ZOTON [Concomitant]
  15. IMDUR [Concomitant]
  16. INSPRA                             /01362602/ [Concomitant]
  17. BUMETANIDE [Concomitant]
  18. SOLPADEINE                         /00116401/ [Concomitant]

REACTIONS (1)
  - Death [Fatal]
